FAERS Safety Report 16926971 (Version 3)
Quarter: 2021Q4

REPORT INFORMATION
  Report Type: Report from Study
  Country: DE (occurrence: DE)
  Receive Date: 20191016
  Receipt Date: 20211118
  Transmission Date: 20220303
  Serious: Yes (Hospitalization, Other)
  Sender: FDA-Public Use
  Company Number: DE-AMGEN-DEUNI2019170045

PATIENT
  Age: 60 Year
  Sex: Male
  Weight: 86 kg

DRUGS (21)
  1. PANITUMUMAB [Suspect]
     Active Substance: PANITUMUMAB
     Indication: Colorectal cancer metastatic
     Dosage: 516 MILLIGRAM
     Route: 042
     Dates: start: 20190718
  2. LEUCOVORIN [Suspect]
     Active Substance: LEUCOVORIN
     Indication: Colorectal cancer metastatic
     Dosage: 812 MILLIGRAM
     Route: 065
     Dates: start: 20190718
  3. LEUCOVORIN [Suspect]
     Active Substance: LEUCOVORIN
     Dosage: 650 MILLIGRAM
     Route: 065
     Dates: start: 20191002
  4. LEUCOVORIN [Suspect]
     Active Substance: LEUCOVORIN
     Dosage: 650 MILLIGRAM
     Route: 065
     Dates: start: 20191024
  5. FLUOROURACIL [Suspect]
     Active Substance: FLUOROURACIL
     Indication: Colorectal cancer metastatic
     Dosage: 812 MILLIGRAM
     Route: 040
     Dates: start: 20190718
  6. FLUOROURACIL [Suspect]
     Active Substance: FLUOROURACIL
     Dosage: 4872 MILLIGRAM
     Route: 042
     Dates: start: 20190718
  7. FLUOROURACIL [Suspect]
     Active Substance: FLUOROURACIL
     Dosage: 650 MILLIGRAM
     Route: 040
     Dates: start: 20191002
  8. FLUOROURACIL [Suspect]
     Active Substance: FLUOROURACIL
     Dosage: 3897 MILLIGRAM
     Route: 042
     Dates: start: 20191002
  9. FLUOROURACIL [Suspect]
     Active Substance: FLUOROURACIL
     Dosage: 3897 MILLIGRAM
     Route: 042
     Dates: start: 20191024
  10. FLUOROURACIL [Suspect]
     Active Substance: FLUOROURACIL
     Dosage: 650 MILLIGRAM
     Route: 040
     Dates: start: 20191024
  11. IRINOTECAN [Suspect]
     Active Substance: IRINOTECAN
     Indication: Colorectal cancer metastatic
     Dosage: 365 MILLIGRAM
     Route: 065
     Dates: start: 20190718
  12. IRINOTECAN [Suspect]
     Active Substance: IRINOTECAN
     Dosage: 356 MILLIGRAM
     Route: 065
     Dates: start: 20190808
  13. IRINOTECAN [Suspect]
     Active Substance: IRINOTECAN
     Dosage: 365 MILLIGRAM
     Route: 065
     Dates: start: 20190822
  14. IRINOTECAN [Suspect]
     Active Substance: IRINOTECAN
     Dosage: 292 MILLIGRAM
     Route: 065
     Dates: start: 20191002
  15. IRINOTECAN [Suspect]
     Active Substance: IRINOTECAN
     Dosage: 292 MILLIGRAM
     Route: 065
     Dates: start: 20191024
  16. HYDROMORPHON RATIOPHARM [Concomitant]
     Indication: Pain
     Dosage: 6 MILLIGRAM, BID
     Route: 048
     Dates: start: 20190701
  17. PANTOPRAZOLE [Concomitant]
     Active Substance: PANTOPRAZOLE
     Indication: Gastritis
     Dosage: 40 MILLIGRAM, QD
     Route: 048
     Dates: start: 20190424
  18. HYDROMORPHONE [Concomitant]
     Active Substance: HYDROMORPHONE
     Indication: Pain
     Dosage: 1.3 MILLIGRAM, AS NECESSARY
     Route: 048
     Dates: start: 20190701
  19. IBUPROFEN [Concomitant]
     Active Substance: IBUPROFEN
     Indication: Pain
     Dosage: 600 MILLIGRAM, AS NECESSARY
     Route: 048
     Dates: start: 20190506
  20. SODIUM PICOSULFATE [Concomitant]
     Active Substance: SODIUM PICOSULFATE
     Indication: Constipation
     Dosage: 10 UNK, AS NECESSARY
     Route: 048
     Dates: start: 20190506
  21. BUTYLSCOPOLAMINE BROMIDE [Concomitant]
     Active Substance: BUTYLSCOPOLAMINE BROMIDE
     Indication: Abdominal pain
     Dosage: 10 MILLIGRAM, AS NECESSARY
     Route: 048
     Dates: start: 20190506

REACTIONS (1)
  - Diabetes mellitus [Recovered/Resolved]

NARRATIVE: CASE EVENT DATE: 20191009
